FAERS Safety Report 17855543 (Version 4)
Quarter: 2020Q3

REPORT INFORMATION
  Report Type: Spontaneous
  Country: CA (occurrence: CA)
  Receive Date: 20200603
  Receipt Date: 20200805
  Transmission Date: 20201103
  Serious: Yes (Death, Other)
  Sender: FDA-Public Use
  Company Number: CA-PFIZER INC-2020148167

PATIENT
  Age: 47 Year
  Sex: Female

DRUGS (2)
  1. LETROZOLE. [Concomitant]
     Active Substance: LETROZOLE
     Indication: BREAST CANCER METASTATIC
     Dosage: 2.5 MG
  2. IBRANCE [Suspect]
     Active Substance: PALBOCICLIB
     Indication: BREAST CANCER METASTATIC
     Dosage: 125 MG, CYCLIC (DAILY FOR 21 DAYS, OFF 7 DAYS)
     Route: 048
     Dates: start: 20200417, end: 2020

REACTIONS (3)
  - Weight decreased [Unknown]
  - Pulmonary oedema [Recovering/Resolving]
  - Death [Fatal]

NARRATIVE: CASE EVENT DATE: 2020
